FAERS Safety Report 5474550-3 (Version None)
Quarter: 2007Q4

REPORT INFORMATION
  Report Type: 
  Country: None (occurrence: None)
  Receive Date: 20071002
  Receipt Date: 20070921
  Transmission Date: 20080405
  Serious: Yes (Other)
  Sender: FDA-Public Use
  Company Number: PT-AMGEN-UK244931

PATIENT
  Sex: Male
  Weight: 60 kg

DRUGS (4)
  1. NEULASTA [Suspect]
     Indication: CHEMOTHERAPY
     Route: 058
     Dates: start: 20070201, end: 20070909
  2. METHOTREXATE [Concomitant]
     Route: 042
     Dates: start: 20070905, end: 20070905
  3. IMATINIB MESYLATE [Concomitant]
     Route: 048
     Dates: start: 20070906, end: 20070920
  4. CYTARABINE [Concomitant]
     Route: 042
     Dates: start: 20070907, end: 20070908

REACTIONS (5)
  - CHEST PAIN [None]
  - FALL [None]
  - HYPOTENSION [None]
  - JOINT INJURY [None]
  - OXYGEN SATURATION DECREASED [None]
